FAERS Safety Report 5048055-8 (Version None)
Quarter: 2006Q3

REPORT INFORMATION
  Report Type: 
  Country: None (occurrence: None)
  Receive Date: 20060710
  Receipt Date: 20060710
  Transmission Date: 20061208
  Serious: Yes (Hospitalization)
  Sender: FDA-Public Use
  Company Number: None

PATIENT
  Age: 61 Year
  Sex: Male

DRUGS (12)
  1. GLEEVEC [Suspect]
     Indication: GLIOBLASTOMA MULTIFORME
     Dosage: 500 MG BID
  2. HYDROXYUREA [Suspect]
     Indication: GLIOBLASTOMA MULTIFORME
     Dosage: 500 MG QD
  3. PTK [Concomitant]
     Indication: GLIOBLASTOMA MULTIFORME
     Dosage: 750MG BID
  4. TOPROL-XL [Concomitant]
  5. ALTACE [Concomitant]
  6. LIPITOR [Concomitant]
  7. ZETIA [Concomitant]
  8. ASPIRIN [Concomitant]
  9. DECADRON [Concomitant]
  10. NEUPOGEN [Concomitant]
  11. NEXIUM [Concomitant]
  12. CITALOPRAM HYDROBROMIDE [Concomitant]

REACTIONS (4)
  - DYSPNOEA EXERTIONAL [None]
  - NEUTROPENIA [None]
  - SINUS CONGESTION [None]
  - WHITE BLOOD CELL COUNT DECREASED [None]
